FAERS Safety Report 4823806-3 (Version None)
Quarter: 2005Q4

REPORT INFORMATION
  Report Type: 
  Country: None (occurrence: None)
  Receive Date: 20051107
  Receipt Date: 20051026
  Transmission Date: 20060501
  Serious: Yes (Other)
  Sender: FDA-Public Use
  Company Number: 2005123563

PATIENT
  Age: 63 Year
  Sex: Male

DRUGS (6)
  1. MEDROL [Suspect]
     Indication: CEREBROVASCULAR ACCIDENT
     Dosage: 60 MG (16 MG, 1 IN 1 D), ORAL
     Route: 048
     Dates: start: 20050801, end: 20050801
  2. DEPO-MEDROL [Suspect]
     Indication: CEREBROVASCULAR ACCIDENT
     Dosage: INTRAVENOUS
     Route: 042
     Dates: start: 20050801, end: 20050801
  3. ACETYLCHOLINE (ACETYLCHOLINE) [Concomitant]
  4. CIPROFLOXACIN [Concomitant]
  5. AMBROXOL (AMBROXOL) [Concomitant]
  6. MULTIVITAMIN [Concomitant]

REACTIONS (1)
  - GASTRIC HAEMORRHAGE [None]
